FAERS Safety Report 18450936 (Version 2)
Quarter: 2021Q2

REPORT INFORMATION
  Report Type: Spontaneous
  Country: US (occurrence: US)
  Receive Date: 20201030
  Receipt Date: 20210621
  Transmission Date: 20210717
  Serious: Yes (Other)
  Sender: FDA-Public Use
  Company Number: US-VERTEX PHARMACEUTICALS-2020-021446

PATIENT

DRUGS (2)
  1. TACROLIMUS. [Suspect]
     Active Substance: TACROLIMUS
     Indication: LIVER TRANSPLANT
     Route: 065
  2. TRIKAFTA [Suspect]
     Active Substance: ELEXACAFTOR\IVACAFTOR\TEZACAFTOR
     Indication: CYSTIC FIBROSIS
     Dosage: UNK
     Route: 048

REACTIONS (8)
  - Change of bowel habit [Unknown]
  - Transaminases increased [Unknown]
  - Seizure [Unknown]
  - Drug interaction [Unknown]
  - Toxicity to various agents [Unknown]
  - Fatigue [Unknown]
  - Transaminases abnormal [Unknown]
  - Immunosuppressant drug level increased [Unknown]
